FAERS Safety Report 11058730 (Version 1)
Quarter: 2015Q2

REPORT INFORMATION
  Report Type: Spontaneous
  Country: ES (occurrence: ES)
  Receive Date: 20150423
  Receipt Date: 20150423
  Transmission Date: 20150821
  Serious: Yes (Other)
  Sender: FDA-Public Use
  Company Number: ES-JNJFOC-20150415942

PATIENT
  Age: 60 Year
  Sex: Male

DRUGS (1)
  1. SIMPONI [Suspect]
     Active Substance: GOLIMUMAB
     Indication: ANKYLOSING SPONDYLITIS
     Route: 058
     Dates: end: 201501

REACTIONS (4)
  - Renal haemorrhage [Unknown]
  - Myocardial infarction [Recovered/Resolved]
  - Renal cell carcinoma [Unknown]
  - Palatal oedema [Recovered/Resolved]

NARRATIVE: CASE EVENT DATE: 2015
